FAERS Safety Report 5747399-1 (Version None)
Quarter: 2008Q2

REPORT INFORMATION
  Report Type: 
  Country: None (occurrence: None)
  Receive Date: 20080523
  Receipt Date: 20080515
  Transmission Date: 20081010
  Serious: Yes (Hospitalization)
  Sender: FDA-Public Use
  Company Number: US-JNJFOC-20080503470

PATIENT
  Sex: Male
  Weight: 68.49 kg

DRUGS (7)
  1. REMICADE [Suspect]
     Route: 042
  2. REMICADE [Suspect]
     Indication: CROHN'S DISEASE
     Route: 042
  3. PREDNISONE TAB [Concomitant]
     Indication: CROHN'S DISEASE
  4. COLESTIPOL HYDROCHLORIDE [Concomitant]
     Indication: CROHN'S DISEASE
  5. LIALDA [Concomitant]
     Indication: CROHN'S DISEASE
  6. CANASA [Concomitant]
     Indication: CROHN'S DISEASE
  7. VANCOMYCIN [Concomitant]
     Indication: CLOSTRIDIAL INFECTION

REACTIONS (1)
  - DEMYELINATING POLYNEUROPATHY [None]
